FAERS Safety Report 4398200-2 (Version None)
Quarter: 2004Q3

REPORT INFORMATION
  Report Type: 
  Country: None (occurrence: None)
  Receive Date: 20040714
  Receipt Date: 20040714
  Transmission Date: 20050211
  Serious: Yes (Death, Hospitalization)
  Sender: FDA-Public Use
  Company Number: None

PATIENT
  Age: 74 Year
  Sex: Female

DRUGS (9)
  1. LISINOPRIL [Suspect]
     Indication: HYPERTENSION
  2. BACTRIM [Suspect]
     Indication: BRONCHITIS
  3. CATAPRES [Concomitant]
  4. IMDUR [Concomitant]
  5. ALLOPURINOL [Concomitant]
  6. POTASSIUM [Concomitant]
  7. LASIX [Concomitant]
  8. AMIODARONE HCL [Concomitant]
  9. AMBIEN [Concomitant]

REACTIONS (14)
  - ANGIONEUROTIC OEDEMA [None]
  - ANOXIC ENCEPHALOPATHY [None]
  - CARDIO-RESPIRATORY ARREST [None]
  - DYSPNOEA [None]
  - ELECTROMECHANICAL DISSOCIATION [None]
  - HYPOTENSION [None]
  - LOSS OF CONSCIOUSNESS [None]
  - MEDICATION ERROR [None]
  - MENTAL STATUS CHANGES [None]
  - MYOCARDIAL INFARCTION [None]
  - OROPHARYNGEAL SWELLING [None]
  - OXYGEN SATURATION DECREASED [None]
  - PHARYNGOLARYNGEAL PAIN [None]
  - VENTRICULAR EXTRASYSTOLES [None]
